FAERS Safety Report 6789939-X (Version None)
Quarter: 2010Q2

REPORT INFORMATION
  Report Type: 
  Country: None (occurrence: None)
  Receive Date: 20100624
  Receipt Date: 20100618
  Transmission Date: 20101027
  Serious: Yes (Hospitalization)
  Sender: FDA-Public Use
  Company Number: JP-PFIZER INC-2010076733

PATIENT
  Age: 40 Year
  Sex: Female

DRUGS (2)
  1. HYSRON-H [Suspect]
     Indication: INFERTILITY
     Dosage: 5 MG, UNK
     Route: 048
  2. PREMARIN [Suspect]
     Dosage: UNK

REACTIONS (1)
  - LIVER DISORDER [None]
